FAERS Safety Report 10038074 (Version 1)
Quarter: 2014Q1

REPORT INFORMATION
  Report Type: Spontaneous
  Country: US (occurrence: US)
  Receive Date: 20140326
  Receipt Date: 20140326
  Transmission Date: 20141002
  Serious: No
  Sender: FDA-Public Use
  Company Number: US-009507513-1403USA010741

PATIENT
  Age: 44 Year
  Sex: Male

DRUGS (1)
  1. JANUMET [Suspect]
     Indication: TYPE 2 DIABETES MELLITUS
     Dosage: 1 TABLET (2.5 MG)  2 X A DAY
     Route: 048
     Dates: start: 201106, end: 201112

REACTIONS (2)
  - Drug ineffective [Recovered/Resolved with Sequelae]
  - Incorrect dose administered [Unknown]
